FAERS Safety Report 6094852-X (Version None)
Quarter: 2009Q1

REPORT INFORMATION
  Report Type: 
  Country: None (occurrence: None)
  Receive Date: 20090227
  Receipt Date: 20090223
  Transmission Date: 20090719
  Serious: Yes (Hospitalization, Other)
  Sender: FDA-Public Use
  Company Number: US-JNJFOC-20090200004

PATIENT
  Sex: Female
  Weight: 102.06 kg

DRUGS (10)
  1. DURAGESIC-100 [Suspect]
     Indication: BACK PAIN
     Route: 062
  2. DURAGESIC-100 [Suspect]
     Indication: MIGRAINE
     Route: 062
  3. DEPAKOTE [Concomitant]
     Indication: MIGRAINE
     Route: 048
  4. TOPAMAX [Concomitant]
     Indication: MIGRAINE
     Route: 048
  5. SYNTHROID [Concomitant]
     Indication: THYROID DISORDER
     Route: 048
  6. PROZAC [Concomitant]
     Indication: DEPRESSION
     Route: 048
  7. HYDROCHLOROTHIAZIDE [Concomitant]
     Dosage: 75/50 MG/PER DAY
     Route: 048
  8. NEXIUM [Concomitant]
     Indication: GASTRIC DISORDER
     Route: 048
  9. PRAVACHOL [Concomitant]
     Indication: BLOOD CHOLESTEROL DECREASED
     Route: 048
  10. POTASSIUM CHLORIDE [Concomitant]
     Indication: MEDICAL DIET
     Route: 048

REACTIONS (6)
  - BRAIN SCAN ABNORMAL [None]
  - CARDIAC ARREST [None]
  - DYSPHONIA [None]
  - DYSPNOEA [None]
  - GAS POISONING [None]
  - WEIGHT DECREASED [None]
